FAERS Safety Report 7236331-X (Version None)
Quarter: 2011Q1

REPORT INFORMATION
  Report Type: 
  Country: None (occurrence: None)
  Receive Date: 20110120
  Receipt Date: 20110118
  Transmission Date: 20110831
  Serious: Yes (Death, Hospitalization, Other)
  Sender: FDA-Public Use
  Company Number: US-PFIZER INC-2010169104

PATIENT
  Sex: Female

DRUGS (1)
  1. SUTENT [Suspect]
     Indication: RENAL CELL CARCINOMA
     Dosage: 50 MG, DAILY 4 WEEKS ON, 2 WEEKS OFF
     Route: 048
     Dates: start: 20101021, end: 20101206

REACTIONS (3)
  - NAUSEA [None]
  - VOMITING [None]
  - PULMONARY ARTERIAL HYPERTENSION [None]
